FAERS Safety Report 20366011 (Version 1)
Quarter: 2022Q1

REPORT INFORMATION
  Report Type: Other
  Country: US (occurrence: US)
  Receive Date: 20220123
  Receipt Date: 20220123
  Transmission Date: 20220423
  Serious: Yes (Hospitalization, Disabling, Other)
  Sender: FDA-Public Use
  Company Number: US-ACORDA-ACO_168100_2021

PATIENT
  Age: 66 Year
  Sex: Female

DRUGS (2)
  1. AMPYRA [Suspect]
     Active Substance: DALFAMPRIDINE
     Indication: Gait disturbance
     Dosage: 10 MILLIGRAM, BID
     Route: 048
     Dates: start: 2010
  2. AMPYRA [Suspect]
     Active Substance: DALFAMPRIDINE
     Indication: Multiple sclerosis

REACTIONS (6)
  - Fall [Recovering/Resolving]
  - Fracture [Recovering/Resolving]
  - Spinal fracture [Recovering/Resolving]
  - Walking disability [Unknown]
  - Gastrointestinal tube insertion [Unknown]
  - Living in residential institution [Unknown]

NARRATIVE: CASE EVENT DATE: 20200301
